FAERS Safety Report 13245355 (Version 4)
Quarter: 2017Q4

REPORT INFORMATION
  Report Type: Report from Study
  Country: FR (occurrence: FR)
  Receive Date: 20170217
  Receipt Date: 20171010
  Transmission Date: 20180320
  Serious: Yes (Hospitalization, Other)
  Sender: FDA-Public Use
  Company Number: PHHO2017FR003212

PATIENT
  Age: 53 Year
  Sex: Female
  Weight: 43.5 kg

DRUGS (3)
  1. RAD 666 / RAD 001A [Suspect]
     Active Substance: EVEROLIMUS
     Indication: NEOPLASM
     Dosage: 10 MG, QD
     Route: 048
     Dates: start: 20170130, end: 20170220
  2. SOLUPRED [Concomitant]
     Active Substance: PREDNISOLONE
     Indication: PRODUCT USED FOR UNKNOWN INDICATION
     Dosage: 20 MG, UNK
     Route: 048
     Dates: start: 20170130
  3. RAD 666 / RAD 001A [Suspect]
     Active Substance: EVEROLIMUS
     Indication: OVARIAN CANCER

REACTIONS (1)
  - Subileus [Not Recovered/Not Resolved]

NARRATIVE: CASE EVENT DATE: 20170204
